FAERS Safety Report 4758590-5 (Version None)
Quarter: 2005Q3

REPORT INFORMATION
  Report Type: 
  Country: None (occurrence: None)
  Receive Date: 20050829
  Receipt Date: 20050809
  Transmission Date: 20060218
  Serious: Yes (Other)
  Sender: FDA-Public Use
  Company Number: PAR_0170_2005

PATIENT
  Age: 35 Year
  Sex: Male

DRUGS (3)
  1. IBUPROFEN [Suspect]
     Indication: EXCORIATION
     Dosage: 400 MG ONCE PO
     Route: 048
  2. IBUPROFEN [Suspect]
     Indication: MUSCLE SPASMS
     Dosage: 400 MG ONCE PO
     Route: 048
  3. TETANUS TOXOID [Suspect]
     Indication: PROPHYLAXIS
     Dosage: DF IM
     Route: 030

REACTIONS (10)
  - CHOLESTASIS [None]
  - HAEMOGLOBIN DECREASED [None]
  - HEPATIC NECROSIS [None]
  - HEPATIC STEATOSIS [None]
  - HEPATITIS [None]
  - PROTHROMBIN TIME SHORTENED [None]
  - PRURITUS GENERALISED [None]
  - RASH MACULO-PAPULAR [None]
  - SCRATCH [None]
  - SKIN HYPERPIGMENTATION [None]
